FAERS Safety Report 19230645 (Version 1)
Quarter: 2021Q2

REPORT INFORMATION
  Report Type: Spontaneous
  Country: US (occurrence: US)
  Receive Date: 20210506
  Receipt Date: 20210506
  Transmission Date: 20210717
  Serious: Yes (Life-Threatening, Other)
  Sender: FDA-Public Use
  Company Number: None

PATIENT
  Age: 31 Year
  Sex: Female
  Weight: 50.4 kg

DRUGS (7)
  1. DAILY MULVITAMIN [Concomitant]
  2. FLORASTOR [Concomitant]
     Active Substance: SACCHAROMYCES CEREVISIAE
  3. ENZYMEDICA [Concomitant]
  4. DEXTROAMPHET SACCHARAT, AMPHET ASPARTATE, DEXTROAMPHET SULFATE AND AMPHET SULFAT [Suspect]
     Active Substance: AMPHETAMINE ASPARTATE\AMPHETAMINE SULFATE\DEXTROAMPHETAMINE SACCHARATE\DEXTROAMPHETAMINE SULFATE
     Indication: ATTENTION DEFICIT HYPERACTIVITY DISORDER
     Dosage: ?          QUANTITY:120 TABLET(S);?
     Route: 048
     Dates: start: 20210503, end: 20210506
  5. D?AMPHETAMINE [Concomitant]
     Active Substance: DEXTROAMPHETAMINE
  6. LOLO ESTROGEN BIRTH CONTROL [Concomitant]
  7. NUTRACELL GUMMIES ACID SOOTHE [Concomitant]

REACTIONS (11)
  - Tremor [None]
  - Dizziness [None]
  - Recalled product administered [None]
  - Heart rate increased [None]
  - Feeling abnormal [None]
  - Hypoaesthesia [None]
  - Insomnia [None]
  - Suspected product quality issue [None]
  - Atypical haemolytic uraemic syndrome [None]
  - Peripheral coldness [None]
  - Anxiety [None]

NARRATIVE: CASE EVENT DATE: 20210503
